FAERS Safety Report 4326701-1 (Version None)
Quarter: 2004Q1

REPORT INFORMATION
  Report Type: 
  Country: None (occurrence: None)
  Receive Date: 20040325
  Receipt Date: 20040219
  Transmission Date: 20041129
  Serious: Yes (Hospitalization, Other)
  Sender: FDA-Public Use
  Company Number: USA030948584

PATIENT
  Age: 69 Year
  Sex: Female
  Weight: 74 kg

DRUGS (5)
  1. EVISTA [Suspect]
     Indication: OSTEOPOROSIS
     Dates: start: 20010101
  2. FORTEO [Suspect]
     Indication: OSTEOPOROSIS
     Dosage: 20 UG/DAY
     Dates: start: 20030926
  3. MIACALCIN [Concomitant]
  4. ACTONEL [Concomitant]
  5. PROLOSEC [Concomitant]

REACTIONS (9)
  - DIZZINESS [None]
  - FALL [None]
  - FEELING ABNORMAL [None]
  - HEADACHE [None]
  - HIP SURGERY [None]
  - INJECTION SITE HAEMORRHAGE [None]
  - NAUSEA [None]
  - SENSORY DISTURBANCE [None]
  - UPPER LIMB FRACTURE [None]
